FAERS Safety Report 25941824 (Version 1)
Quarter: 2025Q4

REPORT INFORMATION
  Report Type: Spontaneous
  Country: EG (occurrence: EG)
  Receive Date: 20251020
  Receipt Date: 20251020
  Transmission Date: 20260118
  Serious: Yes (Other)
  Sender: PFIZER
  Company Number: EG-PFIZER INC-PV202500123247

PATIENT
  Age: 52 Year
  Sex: Female

DRUGS (4)
  1. IBRANCE [Suspect]
     Active Substance: PALBOCICLIB
     Indication: Breast cancer metastatic
     Dosage: 125 MG, CYCLIC (ONCE DAILY FOR 21 DAYS THEN STOP FOR ONE WEEK)
     Route: 048
     Dates: start: 2023
  2. FEMARA [Concomitant]
     Active Substance: LETROZOLE
     Indication: Bladder disorder
     Dosage: UNK
  3. FEMARA [Concomitant]
     Active Substance: LETROZOLE
     Indication: Breast cancer metastatic
  4. GOSERELIN [Concomitant]
     Active Substance: GOSERELIN
     Indication: Bladder disorder
     Dosage: UNK

REACTIONS (1)
  - Cataract [Unknown]
